FAERS Safety Report 19821198 (Version 2)
Quarter: 2024Q1

REPORT INFORMATION
  Report Type: Spontaneous
  Country: US (occurrence: US)
  Receive Date: 20210913
  Receipt Date: 20240201
  Transmission Date: 20240410
  Serious: No
  Sender: FDA-Public Use
  Company Number: US-NOVEN PHARMACEUTICALS, INC.-2020US007841

PATIENT
  Sex: Female

DRUGS (1)
  1. COMBIPATCH [Suspect]
     Active Substance: ESTRADIOL\NORETHINDRONE ACETATE
     Indication: Product used for unknown indication
     Dosage: 0.05/0.14 MG/DAY, 1 TRANSDERMAL PATCH EVERY 3-4 DAYS
     Route: 062
     Dates: start: 2010

REACTIONS (2)
  - Therapeutic response unexpected [Not Recovered/Not Resolved]
  - No adverse event [Unknown]
